FAERS Safety Report 7045118-2 (Version None)
Quarter: 2010Q4

REPORT INFORMATION
  Report Type: 
  Country: None (occurrence: None)
  Receive Date: 20101014
  Receipt Date: 20101005
  Transmission Date: 20110411
  Serious: Yes (Hospitalization)
  Sender: FDA-Public Use
  Company Number: US-MYLANLABS-2010S1018232

PATIENT
  Age: 46 Year
  Sex: Female
  Weight: 87.91 kg

DRUGS (8)
  1. HYDROCHLOROTHIAZIDE [Suspect]
     Indication: HYPERTENSION
     Route: 048
     Dates: start: 20090618, end: 20090923
  2. LISINOPRIL [Suspect]
     Indication: HYPERTENSION
     Route: 048
     Dates: start: 20090521, end: 20090923
  3. DARVOCET-N 100 [Concomitant]
     Dosage: TABLETS
     Dates: start: 19970101
  4. NADOLOL [Concomitant]
     Dosage: TABLETS
     Dates: start: 20090925
  5. MULTI-VITAMINS [Concomitant]
     Dosage: CAPSULES
     Dates: start: 20090820
  6. FLAX [Concomitant]
     Dates: start: 20080701
  7. HYDROCHLOROTHIAZIDE [Concomitant]
     Dates: start: 20090925
  8. PRILOSEC [Concomitant]
     Dates: start: 20090411

REACTIONS (1)
  - ADNEXA UTERI MASS [None]
